FAERS Safety Report 25551561 (Version 5)
Quarter: 2025Q3

REPORT INFORMATION
  Report Type: Spontaneous
  Country: PA (occurrence: PA)
  Receive Date: 20250714
  Receipt Date: 20250829
  Transmission Date: 20251021
  Serious: No
  Sender: PFIZER
  Company Number: PA-PFIZER INC-PV202500082205

PATIENT
  Age: 13 Year
  Sex: Female
  Weight: 29.03 kg

DRUGS (1)
  1. GENOTROPIN [Suspect]
     Active Substance: SOMATROPIN
     Dosage: 1.5 MG, DAILY
     Route: 058

REACTIONS (6)
  - Device leakage [Unknown]
  - Device delivery system issue [Unknown]
  - Device physical property issue [Unknown]
  - Device physical property issue [Unknown]
  - Drug dose omission by device [Unknown]
  - Product communication issue [Unknown]

NARRATIVE: CASE EVENT DATE: 20250601
